FAERS Safety Report 10035439 (Version 1)
Quarter: 2014Q1

REPORT INFORMATION
  Report Type: Spontaneous
  Country: US (occurrence: None)
  Receive Date: 20140306
  Receipt Date: 20140306
  Transmission Date: 20141002
  Serious: Yes (Hospitalization)
  Sender: FDA-Public Use
  Company Number: 163-21880-13011397

PATIENT
  Age: 87 Year
  Sex: Female

DRUGS (9)
  1. REVLIMID (LENALIDOMIDE) (CAPSULES) [Suspect]
     Indication: PLASMA CELL MYELOMA
     Dosage: 25 MG, 1 IN 1 D, PO 03/19/2012 - UNKNOWN
     Route: 048
     Dates: start: 20120319
  2. AMITZA (LUBIPROSTONE) [Concomitant]
  3. ASPIR-81 (OTHER THERAPEUTIC PRODUCTS) [Concomitant]
  4. BISOPROLOL [Concomitant]
  5. CALCIUM [Concomitant]
  6. COUMADIN (WARFARIN SODIUM) [Concomitant]
  7. DEXAMETHASONE [Concomitant]
  8. ECHINACEA [Concomitant]
  9. OMEPRAZOLE [Concomitant]

REACTIONS (1)
  - Thrombosis [None]
